FAERS Safety Report 8838874 (Version 1)
Quarter: 2012Q4

REPORT INFORMATION
  Report Type: Spontaneous
  Country: US (occurrence: None)
  Receive Date: 20121011
  Receipt Date: 20121011
  Transmission Date: 20130627
  Serious: Yes (Life-Threatening, Hospitalization)
  Sender: FDA-Public Use
  Company Number: None

PATIENT
  Sex: Female
  Weight: 80.29 kg

DRUGS (2)
  1. ORTHO TRI-CYCLEN LO [Suspect]
     Indication: MENORRHAGIA
     Dosage: 0.025mg every day at night po
     Route: 048
     Dates: start: 20120626, end: 20120824
  2. ORTHO TRI-CYCLEN LO [Suspect]
     Indication: OVARIAN CYST
     Dosage: 0.025mg every day at night po
     Route: 048
     Dates: start: 20120626, end: 20120824

REACTIONS (1)
  - Pulmonary embolism [None]
